FAERS Safety Report 4753130-9 (Version None)
Quarter: 2005Q3

REPORT INFORMATION
  Report Type: 
  Country: None (occurrence: None)
  Receive Date: 20050826
  Receipt Date: 20050714
  Transmission Date: 20060218
  Serious: Yes (Other)
  Sender: FDA-Public Use
  Company Number: JP-MERCK-0507USA03435

PATIENT
  Age: 73 Year
  Sex: Female

DRUGS (13)
  1. FOSAMAX [Suspect]
     Indication: OSTEOPOROSIS
     Route: 048
     Dates: start: 20050210, end: 20050711
  2. ETODOLAC [Concomitant]
     Indication: BACK PAIN
     Route: 048
     Dates: start: 20050307, end: 20050314
  3. ETODOLAC [Concomitant]
     Route: 048
     Dates: start: 20050326, end: 20050402
  4. ETODOLAC [Concomitant]
     Route: 048
     Dates: start: 20050205, end: 20050221
  5. RINLAXER [Concomitant]
     Indication: BACK PAIN
     Route: 048
     Dates: start: 20050307, end: 20050314
  6. RINLAXER [Concomitant]
     Route: 048
     Dates: start: 20050326, end: 20050402
  7. RINLAXER [Concomitant]
     Route: 048
     Dates: start: 20050205, end: 20050221
  8. SOLON [Concomitant]
     Indication: PROPHYLAXIS AGAINST GASTROINTESTINAL ULCER
     Route: 048
     Dates: start: 20050205, end: 20050221
  9. SOLON [Concomitant]
     Route: 048
     Dates: start: 20050326, end: 20050402
  10. SOLON [Concomitant]
     Route: 048
     Dates: start: 20050307, end: 20050314
  11. NORVASC [Concomitant]
     Route: 048
  12. CAFFEINE AND ERGOTAMINE TARTRATE [Concomitant]
     Route: 048
  13. HALCION [Concomitant]
     Route: 048

REACTIONS (1)
  - HEPATIC FUNCTION ABNORMAL [None]
